FAERS Safety Report 4577576-7 (Version None)
Quarter: 2005Q1

REPORT INFORMATION
  Report Type: 
  Country: None (occurrence: None)
  Receive Date: 20050208
  Receipt Date: 20050124
  Transmission Date: 20050727
  Serious: No
  Sender: FDA-Public Use
  Company Number: 2005S1000283

PATIENT
  Age: 55 Year
  Sex: Female

DRUGS (5)
  1. APOMORPHINE HCL [Suspect]
     Dosage: SUBCUTANEOUS INFUSION
     Route: 058
  2. CARBIDOPA AND LEVODOPA [Concomitant]
  3. LEVODOPA/BENSERAZIDE [Concomitant]
  4. ROPINEROLE [Concomitant]
  5. AMANTADINE [Concomitant]

REACTIONS (6)
  - EOSINOPHIL COUNT DECREASED [None]
  - EOSINOPHILIA [None]
  - EXANTHEM [None]
  - INFUSION SITE INDURATION [None]
  - NECROTISING PANNICULITIS [None]
  - RASH MACULO-PAPULAR [None]
